FAERS Safety Report 5474404-2 (Version None)
Quarter: 2007Q3

REPORT INFORMATION
  Report Type: 
  Country: None (occurrence: None)
  Receive Date: 20070928
  Receipt Date: 20070914
  Transmission Date: 20080115
  Serious: Yes (Life-Threatening, Hospitalization, Other)
  Sender: FDA-Public Use
  Company Number: 161552ISR

PATIENT
  Age: 82 Year
  Sex: Male

DRUGS (3)
  1. AMITRIPTYLINE HCL [Suspect]
     Dosage: (10 MG)
     Route: 048
     Dates: start: 20070626
  2. PREDNISOLONE [Suspect]
     Dosage: (20 MG)
     Route: 048
     Dates: start: 20070809
  3. ACETYLSALICYLIC ACID [Suspect]
     Dosage: (75 MG)
     Route: 048
     Dates: start: 20070626, end: 20070907

REACTIONS (1)
  - GASTROINTESTINAL HAEMORRHAGE [None]
